FAERS Safety Report 5943094-4 (Version None)
Quarter: 2008Q4

REPORT INFORMATION
  Report Type: 
  Country: None (occurrence: None)
  Receive Date: 20081106
  Receipt Date: 20081102
  Transmission Date: 20090506
  Serious: Yes (Other)
  Sender: FDA-Public Use
  Company Number: US-BAYER-200837347NA

PATIENT
  Age: 72 Year
  Sex: Male
  Weight: 119 kg

DRUGS (1)
  1. CIPRO [Suspect]
     Indication: LOCALISED INFECTION
     Dates: start: 20081019, end: 20081021

REACTIONS (5)
  - MOBILITY DECREASED [None]
  - OEDEMA PERIPHERAL [None]
  - PAIN IN EXTREMITY [None]
  - RASH [None]
  - SKIN CHAPPED [None]
